FAERS Safety Report 6075849-2 (Version None)
Quarter: 2009Q1

REPORT INFORMATION
  Report Type: 
  Country: None (occurrence: None)
  Receive Date: 20090210
  Receipt Date: 20090120
  Transmission Date: 20090719
  Serious: No
  Sender: FDA-Public Use
  Company Number: 2009-190924-NL

PATIENT
  Age: 35 Year
  Sex: Female

DRUGS (3)
  1. DEXAMETHASONE [Suspect]
     Indication: ADRENOGENITAL SYNDROME
     Dosage: 0.25 MG/0.75 MG
  2. FLUDROCORTISONE ACETATE [Suspect]
     Indication: ADRENOGENITAL SYNDROME
     Dosage: 100 UG/150 UG
  3. TOPIRAMATE [Suspect]
     Indication: CONVULSION
     Dosage: 100 MG
     Dates: start: 20050301

REACTIONS (2)
  - ADRENAL INSUFFICIENCY [None]
  - CONVULSION [None]
